FAERS Safety Report 10063016 (Version 1)
Quarter: 2014Q2

REPORT INFORMATION
  Report Type: Spontaneous
  Country: US (occurrence: US)
  Receive Date: 20140407
  Receipt Date: 20140407
  Transmission Date: 20141212
  Serious: Yes (Other)
  Sender: FDA-Public Use
  Company Number: US-BRISTOL-MYERS SQUIBB COMPANY-20575775

PATIENT
  Age: 65 Year
  Sex: Male
  Weight: 99.77 kg

DRUGS (1)
  1. BYDUREON [Suspect]
     Indication: TYPE 2 DIABETES MELLITUS

REACTIONS (7)
  - Shoulder operation [Unknown]
  - Nausea [Recovered/Resolved]
  - Blood glucose decreased [Unknown]
  - Influenza like illness [Unknown]
  - Chills [Unknown]
  - Aphagia [Unknown]
  - Blood glucose increased [Unknown]
